FAERS Safety Report 18196404 (Version 1)
Quarter: 2020Q3

REPORT INFORMATION
  Report Type: Spontaneous
  Country: DE (occurrence: DE)
  Receive Date: 20200826
  Receipt Date: 20200826
  Transmission Date: 20201103
  Serious: Yes (Hospitalization)
  Sender: FDA-Public Use
  Company Number: DE-TEVA-2020-DE-1819666

PATIENT
  Age: 70 Year
  Sex: Male
  Weight: 101 kg

DRUGS (10)
  1. ACETYLSALICYLSAURE [Concomitant]
     Active Substance: ASPIRIN
     Dosage: 100 MILLIGRAM DAILY; 0?1?0?0
  2. TAMSULOSIN [Interacting]
     Active Substance: TAMSULOSIN
     Dosage: .4 MILLIGRAM DAILY;  0?0?1?0
  3. DULAGLUTID [Concomitant]
     Active Substance: DULAGLUTIDE
     Dosage: 1.5 MILLIGRAM DAILY; 1?0?0?0
  4. HYDROCHLOROTHIAZID [Suspect]
     Active Substance: HYDROCHLOROTHIAZIDE
     Dosage: 12.5 MILLIGRAM DAILY; 1?0?0?0
  5. METFORMIN [Concomitant]
     Active Substance: METFORMIN HYDROCHLORIDE
     Dosage: 2000 MILLIGRAM DAILY; 1000 MG, 1?0?1?0
  6. BISOPROLOL [Interacting]
     Active Substance: BISOPROLOL
     Dosage: 2.5 MILLIGRAM DAILY; 0?0?1?0
  7. OMEPRAZOL [Concomitant]
     Active Substance: OMEPRAZOLE
     Dosage: 40 MILLIGRAM DAILY; 1?0?0?0
  8. CANDESARTAN. [Interacting]
     Active Substance: CANDESARTAN
     Dosage: 16 MILLIGRAM DAILY; 1?0?0?0
  9. CIPROFLOXACIN. [Interacting]
     Active Substance: CIPROFLOXACIN
     Dosage: 2 DOSAGE FORMS DAILY; NK MG, 1?0?1?0
  10. ATORVASTATIN [Concomitant]
     Active Substance: ATORVASTATIN
     Dosage: 40 MILLIGRAM DAILY; 0?0?1?0

REACTIONS (9)
  - Product prescribing error [Unknown]
  - Blood pressure decreased [Unknown]
  - Labelled drug-drug interaction medication error [Unknown]
  - Nocturia [Recovering/Resolving]
  - Product monitoring error [Unknown]
  - Pyrexia [Recovering/Resolving]
  - Constipation [Recovering/Resolving]
  - Dysuria [Recovering/Resolving]
  - Polyuria [Recovering/Resolving]
